FAERS Safety Report 5947665-0 (Version None)
Quarter: 2008Q4

REPORT INFORMATION
  Report Type: 
  Country: None (occurrence: None)
  Receive Date: 20081110
  Receipt Date: 20081031
  Transmission Date: 20090506
  Serious: Yes (Hospitalization)
  Sender: FDA-Public Use
  Company Number: ADE2008-0365

PATIENT
  Age: 72 Year
  Sex: Female
  Weight: 38 kg

DRUGS (3)
  1. ALENDRONATE SODIUM [Suspect]
     Indication: OSTEOPOROSIS
     Dosage: 10 MG - QD - ORAL 70 MG - 1XW - PO
     Route: 048
  2. ALENDRONATE SODIUM [Suspect]
     Indication: OSTEOPOROSIS
     Dosage: 10 MG - QD - ORAL 70 MG - 1XW - PO
     Route: 048
  3. CALCIUM SUPPLEMENT THERAPY X 7 YEARS [Concomitant]

REACTIONS (4)
  - FALL [None]
  - FEMUR FRACTURE [None]
  - GAIT DISTURBANCE [None]
  - JOINT SPRAIN [None]
